FAERS Safety Report 7224147-X (Version None)
Quarter: 2011Q1

REPORT INFORMATION
  Report Type: 
  Country: None (occurrence: None)
  Receive Date: 20110113
  Receipt Date: 20110107
  Transmission Date: 20110831
  Serious: No
  Sender: FDA-Public Use
  Company Number: US-BIOGENIDEC-2011BI001159

PATIENT
  Age: 67 Year
  Sex: Female

DRUGS (4)
  1. STEROIDS [Concomitant]
     Indication: CATARACT OPERATION
     Dates: start: 20101111, end: 20101125
  2. ANESTHESIA (NOS) [Concomitant]
     Indication: CATARACT OPERATION
     Dates: start: 20101111
  3. EYE DROPS(NOS) [Concomitant]
     Route: 047
     Dates: start: 20101111
  4. AVONEX [Suspect]
     Indication: MULTIPLE SCLEROSIS
     Route: 030
     Dates: start: 20001009

REACTIONS (4)
  - CATARACT [None]
  - NAUSEA [None]
  - DIARRHOEA [None]
  - ABDOMINAL PAIN UPPER [None]
